FAERS Safety Report 18208592 (Version 1)
Quarter: 2020Q3

REPORT INFORMATION
  Report Type: Spontaneous
  Country: US (occurrence: US)
  Receive Date: 20200828
  Receipt Date: 20200828
  Transmission Date: 20201103
  Serious: Yes (Disabling, Other)
  Sender: FDA-Public Use
  Company Number: US-PURDUE-USA-2020-0163089

PATIENT
  Age: 26 Year
  Sex: Male

DRUGS (25)
  1. OXYCONTIN [Suspect]
     Active Substance: OXYCODONE HYDROCHLORIDE
     Dosage: 20 MG, QID
     Route: 048
  2. HYDROMORPHONE TABLETS [Suspect]
     Active Substance: HYDROMORPHONE
     Indication: PAIN
     Route: 048
  3. SOMA [Suspect]
     Active Substance: CARISOPRODOL
     Indication: PAIN
     Dosage: UNK, TID
     Route: 065
  4. NORTRIPTYLINE [Suspect]
     Active Substance: NORTRIPTYLINE
     Indication: PAIN
     Dosage: 50 MG, UNK
     Route: 065
  5. SOMA [Suspect]
     Active Substance: CARISOPRODOL
     Dosage: 350 UNK, BID
     Route: 065
  6. SOMA [Suspect]
     Active Substance: CARISOPRODOL
     Dosage: 350 MG, QID PRN
     Route: 048
     Dates: start: 20001221
  7. SOMA [Suspect]
     Active Substance: CARISOPRODOL
     Dosage: 2 TABLET, DAILY
     Route: 065
  8. OXYCONTIN [Suspect]
     Active Substance: OXYCODONE HYDROCHLORIDE
     Dosage: 20 MG, 1 OR 2 TB, TID
     Route: 048
     Dates: start: 20001206
  9. HYDROCODONE BITARTRATE AND ACETAMINOPHEN [Suspect]
     Active Substance: ACETAMINOPHEN\HYDROCODONE BITARTRATE
     Indication: PAIN
     Route: 048
  10. MS CONTIN [Suspect]
     Active Substance: MORPHINE SULFATE
     Indication: PAIN
     Route: 048
  11. OXYCODONE/ ACETAMINOPHEN TABLETS [Suspect]
     Active Substance: ACETAMINOPHEN\OXYCODONE HYDROCHLORIDE
     Indication: PAIN
     Route: 048
  12. PERCOCET                           /00446701/ [Suspect]
     Active Substance: ACETAMINOPHEN\OXYCODONE HYDROCHLORIDE\OXYCODONE TEREPHTHALATE
     Dosage: 7.5MG?325MG
     Route: 065
     Dates: start: 20060623
  13. OXYCONTIN [Suspect]
     Active Substance: OXYCODONE HYDROCHLORIDE
     Dosage: 40 MG, TID PRN
     Route: 048
  14. OXYCONTIN [Suspect]
     Active Substance: OXYCODONE HYDROCHLORIDE
     Dosage: 40 MG, TID
     Route: 048
     Dates: start: 20010102
  15. OXYCONTIN [Suspect]
     Active Substance: OXYCODONE HYDROCHLORIDE
     Dosage: 20 MG, UNK
     Route: 048
     Dates: start: 20010104
  16. OXYCODONE HCL TABLETS (RHODES 91?490) [Suspect]
     Active Substance: OXYCODONE HYDROCHLORIDE
     Indication: PAIN
     Dosage: 15 MG, Q8H
     Route: 048
  17. MORPHINE SULFATE (SIMILAR TO NDA 19?516) [Suspect]
     Active Substance: MORPHINE SULFATE
     Indication: PAIN
     Route: 048
  18. PERCOCET                           /00446701/ [Suspect]
     Active Substance: ACETAMINOPHEN\OXYCODONE HYDROCHLORIDE\OXYCODONE TEREPHTHALATE
     Dosage: 7.5MG/ 325MG, 1?2 TB, Q4H
     Route: 048
  19. MORPHINE SULFATE EXTENDED?RELEASE TABLETS (RHODES 74?769, 74?862) [Suspect]
     Active Substance: MORPHINE SULFATE
     Indication: PAIN
     Route: 048
  20. PERCOCET                           /00446701/ [Suspect]
     Active Substance: ACETAMINOPHEN\OXYCODONE HYDROCHLORIDE\OXYCODONE TEREPHTHALATE
     Indication: PAIN
     Dosage: 16 TABLET, DAILY
     Route: 065
  21. IBUPROFEN. [Suspect]
     Active Substance: IBUPROFEN
     Indication: PAIN
     Dosage: 800 UNK, TID
     Route: 065
  22. MEDROL [Suspect]
     Active Substance: METHYLPREDNISOLONE
     Indication: PAIN
     Route: 065
  23. OXYCONTIN [Suspect]
     Active Substance: OXYCODONE HYDROCHLORIDE
     Indication: PAIN
     Dosage: 10 MG, TID
     Route: 048
  24. DILAUDID [Suspect]
     Active Substance: HYDROMORPHONE HYDROCHLORIDE
     Indication: PAIN
     Route: 048
  25. MSIR [Suspect]
     Active Substance: MORPHINE SULFATE
     Indication: PAIN
     Route: 065

REACTIONS (18)
  - Neuropathy peripheral [Unknown]
  - Pneumonia [Unknown]
  - Pain in extremity [Unknown]
  - Gait disturbance [Unknown]
  - Emotional distress [Unknown]
  - Osteoarthritis [Unknown]
  - Bronchitis [Unknown]
  - Drug tolerance [Unknown]
  - Post laminectomy syndrome [Unknown]
  - Sleep disorder [Unknown]
  - Depressed mood [Unknown]
  - Drug dependence [Unknown]
  - Lumbosacral radiculopathy [Unknown]
  - Withdrawal syndrome [Unknown]
  - Impaired quality of life [Unknown]
  - Hypoaesthesia [Unknown]
  - Back pain [Unknown]
  - Anxiety [Unknown]

NARRATIVE: CASE EVENT DATE: 2000
